FAERS Safety Report 13336465 (Version 2)
Quarter: 2017Q1

REPORT INFORMATION
  Report Type: Report from Study
  Country: NZ (occurrence: NZ)
  Receive Date: 20170314
  Receipt Date: 20170314
  Transmission Date: 20170428
  Serious: Yes (Other)
  Sender: FDA-Public Use
  Company Number: PHHY2017NZ033959

PATIENT
  Sex: Female

DRUGS (4)
  1. OMNITROPE [Suspect]
     Active Substance: SOMATROPIN
     Indication: PRODUCT USED FOR UNKNOWN INDICATION
     Dosage: 1.1 MG, UNK
     Route: 058
  2. THYROXINE [Concomitant]
     Active Substance: LEVOTHYROXINE
     Dosage: 37.5 MCG, ALTERNATE DAYS
     Route: 065
  3. HYDROCORTISON [Concomitant]
     Active Substance: HYDROCORTISONE
     Indication: PRODUCT USED FOR UNKNOWN INDICATION
     Dosage: 9.5 MG/M2, UNK
     Route: 065
  4. THYROXINE [Concomitant]
     Active Substance: LEVOTHYROXINE
     Indication: PRODUCT USED FOR UNKNOWN INDICATION
     Dosage: 50 MCG, ALTERNATE DAYS
     Route: 065

REACTIONS (9)
  - Constipation [Unknown]
  - Hypopituitarism [Unknown]
  - Faecaloma [Unknown]
  - Developmental delay [Unknown]
  - Nasopharyngitis [Unknown]
  - Septo-optic dysplasia [Unknown]
  - Abdominal distension [Unknown]
  - Eczema [Unknown]
  - Cough [Unknown]
